FAERS Safety Report 7355133-7 (Version None)
Quarter: 2011Q1

REPORT INFORMATION
  Report Type: 
  Country: None (occurrence: None)
  Receive Date: 20110225
  Receipt Date: 20101221
  Transmission Date: 20110831
  Serious: No
  Sender: FDA-Public Use
  Company Number: 321053

PATIENT
  Age: 40 Year
  Sex: Female

DRUGS (2)
  1. VICTOZA [Suspect]
     Indication: DIABETES MELLITUS
     Dosage: SUBCUTANEOUS
     Route: 058
  2. VICTOZA [Suspect]
     Indication: WEIGHT CONTROL
     Dosage: SUBCUTANEOUS
     Route: 058

REACTIONS (2)
  - VOMITING [None]
  - WEIGHT DECREASED [None]
